FAERS Safety Report 11480580 (Version 2)
Quarter: 2015Q3

REPORT INFORMATION
  Report Type: Spontaneous
  Country: JP (occurrence: JP)
  Receive Date: 20150909
  Receipt Date: 20150914
  Transmission Date: 20151125
  Serious: Yes (Hospitalization, Other)
  Sender: FDA-Public Use
  Company Number: JP-ASTELLAS-2015JP017909

PATIENT
  Age: 76 Year
  Sex: Male
  Weight: 54 kg

DRUGS (12)
  1. RHEUMATREX [Suspect]
     Active Substance: METHOTREXATE SODIUM
     Indication: RHEUMATOID ARTHRITIS
     Route: 048
     Dates: start: 20070806, end: 20080701
  2. RINDERON                           /00008501/ [Suspect]
     Active Substance: BETAMETHASONE
     Route: 053
     Dates: start: 20150521, end: 20150521
  3. PROGRAF [Suspect]
     Active Substance: TACROLIMUS\TACROLIMUS ANHYDROUS
     Route: 048
     Dates: start: 20120719, end: 20150607
  4. RHEUMATREX [Suspect]
     Active Substance: METHOTREXATE SODIUM
     Route: 048
     Dates: start: 20080702, end: 20141001
  5. RINDERON                           /00008501/ [Suspect]
     Active Substance: BETAMETHASONE
     Indication: INTERVERTEBRAL DISC PROTRUSION
     Route: 008
     Dates: start: 20150507, end: 20150507
  6. RHEUMATREX [Suspect]
     Active Substance: METHOTREXATE SODIUM
     Route: 048
     Dates: start: 20141002, end: 20150624
  7. RINDERON                           /00008501/ [Suspect]
     Active Substance: BETAMETHASONE
     Route: 008
     Dates: start: 20150515, end: 20150515
  8. PROGRAF [Suspect]
     Active Substance: TACROLIMUS\TACROLIMUS ANHYDROUS
     Route: 048
     Dates: start: 20070621, end: 20120718
  9. PROGRAF [Suspect]
     Active Substance: TACROLIMUS\TACROLIMUS ANHYDROUS
     Indication: PRODUCT USED FOR UNKNOWN INDICATION
     Route: 065
  10. RINDERON                           /00008501/ [Suspect]
     Active Substance: BETAMETHASONE
     Route: 030
     Dates: start: 20150602, end: 20150602
  11. RINDERON                           /00008501/ [Suspect]
     Active Substance: BETAMETHASONE
     Route: 053
     Dates: start: 20150604, end: 20150604
  12. RINDERON                           /00008501/ [Suspect]
     Active Substance: BETAMETHASONE
     Route: 030
     Dates: start: 20150526, end: 20150526

REACTIONS (6)
  - Diffuse large B-cell lymphoma [Recovered/Resolved]
  - Rash generalised [Recovered/Resolved]
  - Intervertebral disc protrusion [Unknown]
  - Joint swelling [Unknown]
  - Rheumatoid arthritis [Unknown]
  - Pleural effusion [Unknown]

NARRATIVE: CASE EVENT DATE: 2015
